FAERS Safety Report 4811193-6 (Version None)
Quarter: 2005Q4

REPORT INFORMATION
  Report Type: 
  Country: None (occurrence: None)
  Receive Date: 20051027
  Receipt Date: 20051019
  Transmission Date: 20060501
  Serious: Yes (Other)
  Sender: FDA-Public Use
  Company Number: CA-JNJFOC-20051004553

PATIENT
  Sex: Female

DRUGS (10)
  1. DURAGESIC-100 [Suspect]
     Route: 062
  2. DILTIAZEM [Concomitant]
     Indication: HYPERTENSION
  3. METOPROLOL [Concomitant]
     Indication: HYPERTENSION
  4. VENTOLIN [Concomitant]
     Dosage: 2 PUFFS, 2 IN 1 DAY
  5. FLOVENT [Concomitant]
     Dosage: 2 PUFFS, 2 IN 1 DAY
  6. CELEXA [Concomitant]
     Indication: DEPRESSION
  7. STOMETIL [Concomitant]
     Indication: VOMITING
     Route: 058
  8. STOMETIL [Concomitant]
     Indication: NAUSEA
     Dosage: AM
     Route: 058
  9. LOSEC [Concomitant]
     Indication: VOMITING
  10. LOSEC [Concomitant]
     Indication: NAUSEA

REACTIONS (1)
  - CONVULSION [None]
